FAERS Safety Report 24383644 (Version 1)
Quarter: 2024Q4

REPORT INFORMATION
  Report Type: Spontaneous
  Country: US (occurrence: US)
  Receive Date: 20241001
  Receipt Date: 20241001
  Transmission Date: 20250114
  Serious: Yes (Hospitalization, Other)
  Sender: MERCK
  Company Number: US-009507513-2409USA009366

PATIENT
  Age: 97 Year
  Sex: Male

DRUGS (1)
  1. KEYTRUDA [Suspect]
     Active Substance: PEMBROLIZUMAB
     Indication: Adenocarcinoma gastric
     Dosage: UNK

REACTIONS (1)
  - Eosinophilic pneumonia acute [Recovered/Resolved]
